FAERS Safety Report 12780574 (Version 4)
Quarter: 2021Q1

REPORT INFORMATION
  Report Type: Spontaneous
  Country: AU (occurrence: AU)
  Receive Date: 20160926
  Receipt Date: 20210204
  Transmission Date: 20210419
  Serious: Yes (Death, Other)
  Sender: FDA-Public Use
  Company Number: AU-PFIZER INC-2016097957

PATIENT
  Age: 28 Year
  Sex: Male

DRUGS (2)
  1. VINCRISTINE SULFATE. [Suspect]
     Active Substance: VINCRISTINE SULFATE
     Indication: BURKITT^S LYMPHOMA
     Dosage: 2 MG
     Route: 037
  2. METHOTREXATE. [Concomitant]
     Active Substance: METHOTREXATE
     Indication: BURKITT^S LYMPHOMA
     Dosage: UNK

REACTIONS (6)
  - Product label issue [Fatal]
  - Neurotoxicity [Fatal]
  - Product administration error [Fatal]
  - Paralysis [Unknown]
  - Incorrect route of product administration [Fatal]
  - Encephalopathy [Fatal]

NARRATIVE: CASE EVENT DATE: 20030101
